FAERS Safety Report 10295887 (Version 1)
Quarter: 2014Q3

REPORT INFORMATION
  Report Type: Spontaneous
  Country: GB (occurrence: GB)
  Receive Date: 20140710
  Receipt Date: 20140710
  Transmission Date: 20150326
  Serious: Yes (Life-Threatening, Disabling, Other)
  Sender: FDA-Public Use
  Company Number: GB-WATSON-2014-14715

PATIENT
  Age: 43 Year
  Sex: Female

DRUGS (4)
  1. METFORMIN [Concomitant]
     Active Substance: METFORMIN HYDROCHLORIDE
     Indication: PRODUCT USED FOR UNKNOWN INDICATION
     Dosage: UNK
     Route: 065
  2. LYMECYCLINE [Concomitant]
     Active Substance: LYMECYCLINE
     Indication: PRODUCT USED FOR UNKNOWN INDICATION
     Dosage: UNK
     Route: 065
  3. MIRTAZAPINE (UNKNOWN) [Suspect]
     Active Substance: MIRTAZAPINE
     Indication: DEPRESSION
     Dosage: 15 MG, UNK (15MG THEN 30MG)
     Route: 048
     Dates: start: 20140423
  4. MIRTAZAPINE (UNKNOWN) [Suspect]
     Active Substance: MIRTAZAPINE
     Dosage: 30MG, UNK (15MG THEN 30MG)
     Route: 048
     Dates: end: 20140528

REACTIONS (13)
  - Withdrawal syndrome [Recovering/Resolving]
  - Tearfulness [Unknown]
  - Blood urine present [Unknown]
  - Eating disorder [Unknown]
  - Hyperhidrosis [Unknown]
  - Suicidal behaviour [Recovering/Resolving]
  - Hypertension [Unknown]
  - Malaise [Unknown]
  - Tremor [Unknown]
  - Flushing [Unknown]
  - Affect lability [Unknown]
  - Insomnia [Unknown]
  - Suicidal ideation [Recovering/Resolving]

NARRATIVE: CASE EVENT DATE: 20140526
